FAERS Safety Report 11507966 (Version 1)
Quarter: 2015Q3

REPORT INFORMATION
  Report Type: Spontaneous
  Country: US (occurrence: US)
  Receive Date: 20150903
  Receipt Date: 20150903
  Transmission Date: 20151125
  Serious: No
  Sender: FDA-Public Use
  Company Number: US-ELI_LILLY_AND_COMPANY-US200910007160

PATIENT
  Age: 68 Year
  Sex: Male

DRUGS (11)
  1. LANTUS [Concomitant]
     Active Substance: INSULIN GLARGINE
     Dosage: 44 U, EACH EVENING
  2. PROZAC [Concomitant]
     Active Substance: FLUOXETINE HYDROCHLORIDE
     Dosage: 90 MG, WEEKLY (1/W)
  3. ASPIRIN. [Concomitant]
     Active Substance: ASPIRIN
     Dosage: 81 MG, DAILY (1/D)
  4. LASIX [Concomitant]
     Active Substance: FUROSEMIDE
     Dosage: 80 MG, EACH MORNING
  5. HUMALOG [Suspect]
     Active Substance: INSULIN LISPRO
     Indication: PANCREATECTOMY
     Dosage: 24 U, 3/D
  6. NORVASC [Concomitant]
     Active Substance: AMLODIPINE BESYLATE
     Dosage: 10 MG, EACH MORNING
  7. TEKTURNA HCT [Concomitant]
     Active Substance: ALISKIREN HEMIFUMARATE\HYDROCHLOROTHIAZIDE
     Dosage: 300 MG, DAILY (1/D)
  8. TOPROL XL [Concomitant]
     Active Substance: METOPROLOL SUCCINATE
     Dosage: 50 MG, 2/D
  9. LIPITOR [Concomitant]
     Active Substance: ATORVASTATIN CALCIUM
     Dosage: 20 MG, EACH EVENING
  10. AVAPRO [Concomitant]
     Active Substance: IRBESARTAN
     Dosage: 150 MG, EACH MORNING
  11. PREVACID [Concomitant]
     Active Substance: LANSOPRAZOLE
     Dosage: 20 MG, EACH MORNING

REACTIONS (3)
  - Blood glucose decreased [Recovered/Resolved]
  - Wrong technique in product usage process [Not Recovered/Not Resolved]
  - Incorrect dose administered [Unknown]

NARRATIVE: CASE EVENT DATE: 200910
